FAERS Safety Report 13494392 (Version 2)
Quarter: 2017Q2

REPORT INFORMATION
  Report Type: Spontaneous
  Country: US (occurrence: US)
  Receive Date: 20170428
  Receipt Date: 20170608
  Transmission Date: 20170830
  Serious: No
  Sender: FDA-Public Use
  Company Number: US-ASTRAZENECA-2017SE41585

PATIENT
  Age: 73 Year
  Sex: Female
  Weight: 59 kg

DRUGS (3)
  1. BEVESPI AEROSPHERE [Suspect]
     Active Substance: FORMOTEROL FUMARATE\GLYCOPYRROLATE
     Indication: BRONCHITIS
     Dosage: 9 BY 4.8 MCG, TWO TIMES A DAY
     Route: 055
     Dates: start: 2016
  2. ALVESCO [Concomitant]
     Active Substance: CICLESONIDE
     Indication: INHALATION THERAPY
     Dosage: AS REQUIRED
     Route: 055
  3. BEVESPI AEROSPHERE [Suspect]
     Active Substance: FORMOTEROL FUMARATE\GLYCOPYRROLATE
     Indication: ASTHMA
     Dosage: 9 BY 4.8 MCG, TWO TIMES A DAY
     Route: 055
     Dates: start: 2016

REACTIONS (5)
  - Off label use [Unknown]
  - Product use issue [Unknown]
  - Dysphonia [Not Recovered/Not Resolved]
  - Product use in unapproved indication [Unknown]
  - Device failure [Unknown]

NARRATIVE: CASE EVENT DATE: 2016
